FAERS Safety Report 6842631-5 (Version None)
Quarter: 2010Q3

REPORT INFORMATION
  Report Type: 
  Country: None (occurrence: None)
  Receive Date: 20100714
  Receipt Date: 20070803
  Transmission Date: 20110219
  Serious: No
  Sender: FDA-Public Use
  Company Number: US-PFIZER INC-2007065849

PATIENT
  Sex: Female
  Weight: 61.2 kg

DRUGS (4)
  1. CHANTIX [Suspect]
     Indication: SMOKING CESSATION THERAPY
     Dates: start: 20070718
  2. CODEINE [Concomitant]
     Indication: BRONCHITIS
     Dates: end: 20070101
  3. OTHER RESPIRATORY SYSTEM PRODUCTS [Concomitant]
     Indication: BRONCHITIS
     Route: 055
     Dates: end: 20070101
  4. SYNTHROID [Concomitant]

REACTIONS (5)
  - DAYDREAMING [None]
  - DIZZINESS [None]
  - FEELING ABNORMAL [None]
  - HYPERHIDROSIS [None]
  - MENOPAUSE [None]
